FAERS Safety Report 7326526-9 (Version None)
Quarter: 2011Q1

REPORT INFORMATION
  Report Type: 
  Country: None (occurrence: None)
  Receive Date: 20110302
  Receipt Date: 20110207
  Transmission Date: 20110831
  Serious: Yes (Other)
  Sender: FDA-Public Use
  Company Number: US-BAYER-200943268NA

PATIENT
  Sex: Female
  Weight: 104 kg

DRUGS (10)
  1. BUMEX [Concomitant]
     Indication: SYSTEMIC LUPUS ERYTHEMATOSUS
  2. PLAQUENIL [Concomitant]
  3. PLAQUENIL [Concomitant]
     Dosage: 200 MG, QD
     Route: 048
     Dates: start: 20080901
  4. BUMEX [Concomitant]
     Indication: SWELLING
     Dosage: UNK
     Route: 048
     Dates: start: 20080901
  5. DEPO-MEDROL [Concomitant]
     Dosage: 40 MG, UNK
     Route: 030
     Dates: start: 20080929
  6. PREDNISONE TAB [Concomitant]
     Dosage: 10 MG, QD
     Route: 048
     Dates: start: 20080901
  7. VYTORIN [Concomitant]
  8. YAZ [Suspect]
     Indication: PRODUCT USED FOR UNKNOWN INDICATION
  9. YASMIN [Suspect]
     Indication: PRODUCT USED FOR UNKNOWN INDICATION
  10. PREDNISONE TAB [Concomitant]
     Indication: SYSTEMIC LUPUS ERYTHEMATOSUS

REACTIONS (7)
  - BILIARY DYSKINESIA [None]
  - CHOLELITHIASIS [None]
  - CHOLECYSTITIS CHRONIC [None]
  - CHOLESTEROSIS [None]
  - PAIN [None]
  - STRESS [None]
  - ABDOMINAL PAIN UPPER [None]
